FAERS Safety Report 7216019-1 (Version None)
Quarter: 2011Q1

REPORT INFORMATION
  Report Type: 
  Country: None (occurrence: None)
  Receive Date: 20110107
  Receipt Date: 20110103
  Transmission Date: 20110831
  Serious: Yes (Other)
  Sender: FDA-Public Use
  Company Number: US-ABBOTT-11P-163-0695380-00

PATIENT
  Sex: Female
  Weight: 94.432 kg

DRUGS (3)
  1. HUMIRA [Suspect]
     Indication: PSORIATIC ARTHROPATHY
     Dates: start: 20090901
  2. HUMIRA [Suspect]
     Indication: PSORIASIS
  3. TRAMADOL [Suspect]
     Indication: PRODUCT USED FOR UNKNOWN INDICATION
     Dates: start: 20100518, end: 20100521

REACTIONS (4)
  - DERMAL CYST [None]
  - SLEEP APNOEA SYNDROME [None]
  - LOSS OF CONSCIOUSNESS [None]
  - HYPERPROTEINAEMIA [None]
